FAERS Safety Report 7949091-1 (Version None)
Quarter: 2011Q4

REPORT INFORMATION
  Report Type: 
  Country: None (occurrence: None)
  Receive Date: 20111130
  Receipt Date: 20110901
  Transmission Date: 20120403
  Serious: No
  Sender: FDA-Public Use
  Company Number: US-BRISTOL-MYERS SQUIBB COMPANY-15922230

PATIENT
  Age: 44 Year
  Sex: Female
  Weight: 111 kg

DRUGS (3)
  1. KOMBIGLYZE XR [Suspect]
     Indication: TYPE 2 DIABETES MELLITUS
     Dosage: KOMBIGLYZE 5/500 MG  1DF=1 TABLET FOR 1ST WK AND 2 TABS FOR 2ND WK
     Dates: start: 20110401
  2. VITAMIN D [Concomitant]
  3. IRON [Concomitant]

REACTIONS (3)
  - DRUG PRESCRIBING ERROR [None]
  - THERAPY CESSATION [None]
  - ECONOMIC PROBLEM [None]
